FAERS Safety Report 14630911 (Version 1)
Quarter: 2018Q1

REPORT INFORMATION
  Report Type: Report from Study
  Country: US (occurrence: US)
  Receive Date: 20180313
  Receipt Date: 20180313
  Transmission Date: 20180509
  Serious: Yes (Other)
  Sender: FDA-Public Use
  Company Number: US-AUROBINDO-AUR-APL-2018-013909

PATIENT
  Age: 38 Year
  Sex: Female

DRUGS (4)
  1. DIAZEPAM. [Suspect]
     Active Substance: DIAZEPAM
     Indication: PSYCHOTIC BEHAVIOUR
     Dosage: 30 MILLIGRAM
  2. LISINOPRIL. [Suspect]
     Active Substance: LISINOPRIL
     Indication: HYPERTENSION
     Dosage: UNK
  3. METAMFETAMINE [Suspect]
     Active Substance: METHAMPHETAMINE
  4. HALOPERIDOL. [Suspect]
     Active Substance: HALOPERIDOL
     Indication: PSYCHOTIC BEHAVIOUR
     Dosage: 10 MILLIGRAM

REACTIONS (2)
  - Lip oedema [Unknown]
  - Toxicity to various agents [Unknown]
